FAERS Safety Report 6029191-6 (Version None)
Quarter: 2009Q1

REPORT INFORMATION
  Report Type: 
  Country: None (occurrence: None)
  Receive Date: 20090106
  Receipt Date: 20081229
  Transmission Date: 20090719
  Serious: Yes (Hospitalization, Other)
  Sender: FDA-Public Use
  Company Number: US-ROXANE LABORATORIES, INC.-2008-RO-00474RO

PATIENT
  Age: 15 Year
  Sex: Female

DRUGS (9)
  1. DEXAMETHASONE [Suspect]
     Indication: T-CELL TYPE ACUTE LEUKAEMIA
  2. METHOTREXATE [Suspect]
     Indication: T-CELL TYPE ACUTE LEUKAEMIA
  3. MERCAPTOPURINE [Suspect]
     Indication: T-CELL TYPE ACUTE LEUKAEMIA
  4. DAPSONE [Suspect]
     Indication: T-CELL TYPE ACUTE LEUKAEMIA
  5. NEUPOGEN [Suspect]
     Indication: T-CELL TYPE ACUTE LEUKAEMIA
  6. IMMUNE GLOBULIN INTRAVENOUS (HUMAN) [Suspect]
     Indication: T-CELL TYPE ACUTE LEUKAEMIA
     Route: 042
  7. CEFEPIME HYDROCHLORIDE [Suspect]
     Route: 042
  8. VANCOMYCIN HYDROCHLORIDE [Suspect]
     Route: 042
  9. LEVETIRACETAM [Suspect]
     Indication: CONVULSION

REACTIONS (6)
  - CEREBRAL HAEMORRHAGE [None]
  - CHORIOMENINGITIS LYMPHOCYTIC [None]
  - HEMIPARESIS [None]
  - INTRAVENTRICULAR HAEMORRHAGE [None]
  - MENINGITIS [None]
  - TOXIC ENCEPHALOPATHY [None]
